FAERS Safety Report 7442152-5 (Version None)
Quarter: 2011Q2

REPORT INFORMATION
  Report Type: 
  Country: None (occurrence: None)
  Receive Date: 20110428
  Receipt Date: 20110420
  Transmission Date: 20111010
  Serious: Yes (Hospitalization)
  Sender: FDA-Public Use
  Company Number: PHHO2011DE07142

PATIENT
  Sex: Female

DRUGS (3)
  1. RENACOR [Concomitant]
  2. METOPROLOL [Suspect]
  3. ANTISTAX [Concomitant]

REACTIONS (1)
  - ANGIOEDEMA [None]
